FAERS Safety Report 8991304 (Version 1)
Quarter: 2012Q4

REPORT INFORMATION
  Report Type: Report from Study
  Country: DE (occurrence: DE)
  Receive Date: 20121231
  Receipt Date: 20121231
  Transmission Date: 20130627
  Serious: Yes (Life-Threatening, Hospitalization)
  Sender: FDA-Public Use
  Company Number: DE-ROCHE-1175150

PATIENT
  Sex: Female

DRUGS (7)
  1. RITUXIMAB [Suspect]
     Indication: RHEUMATOID ARTHRITIS
     Route: 065
     Dates: start: 20070111, end: 20110117
  2. METHOTREXATE [Concomitant]
     Indication: RHEUMATOID ARTHRITIS
     Route: 048
     Dates: start: 200504, end: 200805
  3. METHOTREXATE [Concomitant]
     Route: 051
     Dates: start: 200808, end: 201005
  4. PREDNISOLONE [Concomitant]
     Route: 065
  5. VOLTAREN RESINAT [Concomitant]
     Route: 065
  6. METFORMIN [Concomitant]
     Route: 065
  7. RAMIPRIL [Concomitant]
     Route: 065

REACTIONS (1)
  - Cervix carcinoma [Recovered/Resolved]
